FAERS Safety Report 4867077-0 (Version None)
Quarter: 2005Q4

REPORT INFORMATION
  Report Type: 
  Country: None (occurrence: None)
  Receive Date: 20051222
  Receipt Date: 20051206
  Transmission Date: 20060501
  Serious: Yes (Life-Threatening, Hospitalization)
  Sender: FDA-Public Use
  Company Number: 2005BL007392

PATIENT
  Age: 66 Year
  Sex: Male

DRUGS (2)
  1. TIM-OPHTAL 0.5% AUGENTROPFEN (TIMOLOL MALEATE) [Suspect]
     Indication: GLAUCOMA
     Dosage: 1 DROP; 3 TIMES A DAY; OPHTHALMIC
     Route: 047
     Dates: start: 20050924
  2. LORZAAR PLUS [Concomitant]

REACTIONS (3)
  - ARRHYTHMIA [None]
  - DYSPNOEA EXERTIONAL [None]
  - THROMBOSIS [None]
